FAERS Safety Report 5947668-6 (Version None)
Quarter: 2008Q4

REPORT INFORMATION
  Report Type: 
  Country: None (occurrence: None)
  Receive Date: 20081110
  Receipt Date: 20081028
  Transmission Date: 20090506
  Serious: Yes (Hospitalization, Other)
  Sender: FDA-Public Use
  Company Number: 2008-01133FE

PATIENT
  Age: 7 Year
  Sex: Female

DRUGS (17)
  1. DESMOPRESSIN ACETATE [Suspect]
     Indication: ENURESIS
     Dosage: 10 MCG/20 MGC/20 MCG/20 MCG IN
     Route: 055
     Dates: start: 20080401, end: 20080405
  2. DESMOPRESSIN ACETATE [Suspect]
     Indication: ENURESIS
     Dosage: 10 MCG/20 MGC/20 MCG/20 MCG IN
     Route: 055
     Dates: start: 20080604, end: 20080608
  3. DESMOPRESSIN ACETATE [Suspect]
     Indication: ENURESIS
     Dosage: 10 MCG/20 MGC/20 MCG/20 MCG IN
     Route: 055
     Dates: start: 20080702, end: 20080810
  4. DESMOPRESSIN ACETATE [Suspect]
     Indication: ENURESIS
     Dosage: 10 MCG/20 MGC/20 MCG/20 MCG IN
     Route: 055
     Dates: start: 20080821, end: 20081001
  5. TOFRANIL [Suspect]
     Indication: ENURESIS
     Dosage: 20 MG/10 MG/10 MG
     Route: 048
     Dates: start: 20080826, end: 20080904
  6. TOFRANIL [Suspect]
     Indication: ENURESIS
     Dosage: 20 MG/10 MG/10 MG
     Route: 048
     Dates: start: 20080905, end: 20080907
  7. TOFRANIL [Suspect]
     Indication: ENURESIS
     Dosage: 20 MG/10 MG/10 MG
     Route: 048
     Dates: start: 20081001, end: 20081001
  8. ERYTHROMYCIN ETHYLSUCCINATE [Concomitant]
  9. CARBOCISTEINE [Concomitant]
  10. MEQUITAZINE [Concomitant]
  11. TIPEPIDINE HIBENZATE [Concomitant]
  12. CEFDITOREN PIVOXIL [Concomitant]
  13. LEBENIN [Concomitant]
  14. OXYBUTYNIN CHLORIDE [Concomitant]
  15. TRANEXAMIC ACID [Concomitant]
  16. ACETAMINOPHEN [Concomitant]
  17. GARASONE [Concomitant]

REACTIONS (11)
  - ABDOMINAL PAIN [None]
  - BLOOD SODIUM DECREASED [None]
  - CHEST DISCOMFORT [None]
  - COMA [None]
  - CONVULSION [None]
  - DEPRESSED LEVEL OF CONSCIOUSNESS [None]
  - DRUG INTERACTION [None]
  - MYDRIASIS [None]
  - THERAPEUTIC RESPONSE DECREASED [None]
  - VOMITING [None]
  - WATER INTOXICATION [None]
